FAERS Safety Report 25239040 (Version 1)
Quarter: 2025Q2

REPORT INFORMATION
  Report Type: Spontaneous
  Country: US (occurrence: None)
  Receive Date: 20250424
  Receipt Date: 20250424
  Transmission Date: 20250716
  Serious: Yes (Hospitalization)
  Sender: FDA-CTU
  Company Number: None

PATIENT
  Age: 73 Year
  Sex: Male
  Weight: 107 kg

DRUGS (4)
  1. AMPICILLIN [Suspect]
     Active Substance: AMPICILLIN
     Indication: Endocarditis
     Dosage: FREQUENCY : TWICE A DAY;?
     Route: 042
     Dates: start: 20250306, end: 20250312
  2. CEFTRIAXONE [Suspect]
     Active Substance: CEFTRIAXONE
     Dosage: FREQUENCY : TWICE A DAY;?
     Route: 042
     Dates: start: 20250306, end: 20250312
  3. APIXABAN [Suspect]
     Active Substance: APIXABAN
  4. CLOPIDOGREL [Suspect]
     Active Substance: CLOPIDOGREL BISULFATE

REACTIONS (11)
  - Thrombocytopenia [None]
  - Bacterial infection [None]
  - Endocarditis [None]
  - Pyrexia [None]
  - Muscular weakness [None]
  - Cardiac valve vegetation [None]
  - Cholelithiasis [None]
  - Pulmonary mass [None]
  - Enterococcus test positive [None]
  - Escherichia infection [None]
  - Bacterial infection [None]

NARRATIVE: CASE EVENT DATE: 20250309
